FAERS Safety Report 9726447 (Version 1)
Quarter: 2013Q4

REPORT INFORMATION
  Report Type: Spontaneous
  Country: US (occurrence: None)
  Receive Date: 20131202
  Receipt Date: 20131202
  Transmission Date: 20140711
  Serious: Yes (Other)
  Sender: FDA-Public Use
  Company Number: None

PATIENT
  Age: 43 Year
  Sex: Female

DRUGS (5)
  1. MIRVASO [Suspect]
     Indication: ROSACEA
     Dates: start: 20131101, end: 20131115
  2. MIRVASO [Suspect]
     Indication: ERYTHEMA
     Dates: start: 20131101, end: 20131115
  3. SINGULAIR [Concomitant]
  4. ALLEGRA-D [Concomitant]
  5. LO-OVRAL-28 [Concomitant]

REACTIONS (2)
  - Hot flush [None]
  - Erythema [None]
